FAERS Safety Report 6776084-2 (Version None)
Quarter: 2010Q2

REPORT INFORMATION
  Report Type: 
  Country: None (occurrence: None)
  Receive Date: 20100615
  Receipt Date: 20100602
  Transmission Date: 20101027
  Serious: Yes (Hospitalization)
  Sender: FDA-Public Use
  Company Number: 7006923

PATIENT
  Age: 56 Year
  Sex: Female

DRUGS (2)
  1. REBIF [Suspect]
     Indication: MULTIPLE SCLEROSIS
     Dosage: 44 MCG, 3 IN 1 WK, SUBCUTANEOUS
     Route: 058
     Dates: start: 20090622
  2. ZANAFLEX [Concomitant]

REACTIONS (4)
  - FALL [None]
  - HUMERUS FRACTURE [None]
  - INFLUENZA LIKE ILLNESS [None]
  - SKIN LACERATION [None]
